FAERS Safety Report 6744010-8 (Version None)
Quarter: 2010Q2

REPORT INFORMATION
  Report Type: 
  Country: None (occurrence: None)
  Receive Date: 20100527
  Receipt Date: 20100521
  Transmission Date: 20101027
  Serious: Yes (Hospitalization)
  Sender: FDA-Public Use
  Company Number: A0783357A

PATIENT
  Age: 56 Year
  Sex: Male
  Weight: 67.3 kg

DRUGS (3)
  1. AVANDIA [Suspect]
     Indication: DIABETES MELLITUS
     Dosage: 8MG PER DAY
     Route: 048
     Dates: start: 20040301, end: 20070611
  2. ALTACE [Concomitant]
  3. GLUCOVANCE [Concomitant]

REACTIONS (1)
  - CEREBROVASCULAR ACCIDENT [None]
